FAERS Safety Report 7640354-6 (Version None)
Quarter: 2011Q3

REPORT INFORMATION
  Report Type: 
  Country: None (occurrence: None)
  Receive Date: 20110728
  Receipt Date: 20091002
  Transmission Date: 20111222
  Serious: Yes (Death, Other)
  Sender: FDA-Public Use
  Company Number: US-BAYER-US-2007-006390

PATIENT
  Age: 80 Year
  Sex: Female
  Weight: 68.027 kg

DRUGS (37)
  1. ISOPHANE INSULIN [Concomitant]
     Dosage: 15 UNITS Q AM
     Route: 058
  2. CALCITRIOL [Concomitant]
     Dosage: .5 ?G, 1X/DAY
     Route: 048
  3. VIAGRA [Concomitant]
     Indication: PULMONARY HYPERTENSION
     Dosage: 25 MG, 3X/DAY
     Route: 048
     Dates: start: 20060501
  4. MAGNEVIST [Suspect]
     Dosage: UNK, ONCE
     Dates: start: 20000424, end: 20000424
  5. MAGNEVIST [Suspect]
     Dosage: UNK, 1 DOSE
     Route: 042
     Dates: start: 20040426, end: 20040426
  6. MAGNEVIST [Suspect]
     Dosage: UNK, 1 DOSE
     Route: 042
     Dates: start: 20050214, end: 20050214
  7. CALCIUM CARBONATE [Concomitant]
     Dosage: 1250 MG, 3X/DAY
     Route: 048
  8. LIPITOR [Concomitant]
     Dosage: 30 MG, BED T.
     Route: 048
  9. ADVAIR DISKUS 100/50 [Concomitant]
     Indication: CHRONIC OBSTRUCTIVE PULMONARY DISEASE
     Dosage: 500/50
     Route: 055
  10. SPIRIVA [Concomitant]
     Indication: CHRONIC OBSTRUCTIVE PULMONARY DISEASE
     Dosage: 18 ?G, QD
     Route: 055
  11. MAGNEVIST [Suspect]
     Dosage: UNK, 1 DOSE
     Route: 042
     Dates: start: 20030129, end: 20030129
  12. MAGNEVIST [Suspect]
     Dosage: UNK, 1 DOSE
     Route: 042
     Dates: start: 20050210, end: 20050210
  13. ASPIRIN [Concomitant]
     Dosage: 162 MG, 1X/DAY
     Route: 048
  14. VITAMINS NOS, FOLIC ACID [Concomitant]
     Dosage: 1 CAP(S), 1X/DAY [DAILY DOSE: 1 CAP(S)]
     Route: 048
  15. MAGNEVIST [Suspect]
     Indication: NUCLEAR MAGNETIC RESONANCE IMAGING
     Dosage: 40 ML, ONCE
     Route: 042
     Dates: start: 19950215, end: 19950215
  16. PLAVIX [Concomitant]
     Dosage: 75 MG, 1X/DAY
     Route: 048
  17. RANITIDINE [Concomitant]
     Dosage: 150 MG, 3X/DAY
     Route: 048
  18. HYDRALAZINE HCL [Concomitant]
     Dosage: 10 MG, 4X/DAY
     Route: 048
  19. NAPROXEN [Concomitant]
     Dosage: 250 MG, 1X/DAY
     Route: 048
  20. MAGNEVIST [Suspect]
     Indication: ANGIOGRAM
     Dosage: UNK, ONCE
     Dates: start: 19950830, end: 19950830
  21. MAGNEVIST [Suspect]
     Dosage: UNK, 1 DOSE
     Route: 042
     Dates: start: 20040125, end: 20040125
  22. MAGNEVIST [Suspect]
     Dosage: UNK, 1 DOSE
     Route: 042
     Dates: start: 20041008, end: 20041008
  23. GADOLINIUM IN UNSPECIFIED DRUG [Suspect]
     Indication: NUCLEAR MAGNETIC RESONANCE IMAGING
     Dosage: UNK, ONCE
     Dates: start: 20060125, end: 20060125
  24. CYANOCOBALAMIN [Concomitant]
  25. FOLIC ACID [Concomitant]
  26. MAGNESIUM OXIDE [Concomitant]
     Dosage: 800 MG, 3X/DAY
     Route: 048
  27. MAGNEVIST [Suspect]
     Dosage: UNK, 1 DOSE
     Route: 042
     Dates: start: 20030409, end: 20030409
  28. GABAPENTIN [Concomitant]
     Dosage: 100 MG, QAM
     Route: 048
  29. LOSARTAN POTASSIUM [Concomitant]
     Dosage: 100 MG, 1X/DAY
     Route: 048
  30. METOPROLOL TARTRATE [Concomitant]
     Dosage: 50 MG, 2X/DAY
     Route: 048
  31. SEVELAMER [Concomitant]
     Dosage: 2400 MG, 3X/DAY
     Route: 048
  32. FOSAMAX [Concomitant]
     Indication: OSTEOPOROSIS
     Dosage: 70 MG WEEKLY
     Route: 048
  33. MAGNEVIST [Suspect]
     Dosage: UNK, ONCE
     Dates: start: 20000418, end: 20000418
  34. MAGNEVIST [Suspect]
     Dosage: UNK, 1 DOSE
     Route: 042
     Dates: start: 19990609, end: 19990609
  35. GADOLINIUM IN UNSPECIFIED DRUG [Suspect]
     Indication: NUCLEAR MAGNETIC RESONANCE IMAGING BRAIN
     Dosage: UNK UNK, ONCE
     Dates: start: 19921007, end: 19921007
  36. SEROQUEL [Concomitant]
     Dosage: 25 MG, BED T.
     Dates: start: 20040301
  37. INSULIN [Concomitant]
     Dosage: 6 UNITS QD
     Route: 058

REACTIONS (2)
  - NEPHROGENIC SYSTEMIC FIBROSIS [None]
  - PULMONARY OEDEMA [None]
